FAERS Safety Report 10066536 (Version 1)
Quarter: 2014Q2

REPORT INFORMATION
  Report Type: Spontaneous
  Country: US (occurrence: None)
  Receive Date: 20140401
  Receipt Date: 20140401
  Transmission Date: 20141212
  Serious: Yes (Other)
  Sender: FDA-Public Use
  Company Number: PHEH2013US007774

PATIENT
  Age: 66 Year
  Sex: Male

DRUGS (3)
  1. EXELON PATCH [Suspect]
     Indication: AGITATION
     Dosage: , TRANSDERMAL
     Route: 062
  2. FANAPT [Concomitant]
  3. BUPROPION (BUPROPION) [Concomitant]

REACTIONS (2)
  - Fall [None]
  - Somnolence [None]
